FAERS Safety Report 4571733-1 (Version None)
Quarter: 2005Q1

REPORT INFORMATION
  Report Type: 
  Country: None (occurrence: None)
  Receive Date: 20050202
  Receipt Date: 20050202
  Transmission Date: 20050727
  Serious: Yes (Death)
  Sender: FDA-Public Use
  Company Number: None

PATIENT
  Age: 77 Year
  Sex: Female
  Weight: 61.5 kg

DRUGS (3)
  1. ENOXAPARIN SODIUM [Suspect]
     Indication: ATRIAL FIBRILLATION
     Dosage: 60 MG   Q12H   SUBCUTANEOU
     Route: 058
     Dates: start: 20041109, end: 20041111
  2. ENOXAPARIN SODIUM [Suspect]
     Indication: MYOCARDIAL INFARCTION
     Dosage: 60 MG   Q12H   SUBCUTANEOU
     Route: 058
     Dates: start: 20041109, end: 20041111
  3. ASPIRIN [Concomitant]

REACTIONS (9)
  - ACUTE MYOCARDIAL INFARCTION [None]
  - ANAEMIA [None]
  - CARDIAC FAILURE CONGESTIVE [None]
  - CARDIO-RESPIRATORY ARREST [None]
  - FLUID OVERLOAD [None]
  - HYPONATRAEMIA [None]
  - HYPOVOLAEMIC SHOCK [None]
  - PLEURAL EFFUSION [None]
  - PNEUMONIA [None]
